FAERS Safety Report 4914439-9 (Version None)
Quarter: 2006Q1

REPORT INFORMATION
  Report Type: 
  Country: None (occurrence: None)
  Receive Date: 20060113
  Receipt Date: 20050921
  Transmission Date: 20060701
  Serious: No
  Sender: FDA-Public Use
  Company Number: 2005SP002290

PATIENT
  Age: 49 Year
  Sex: Female
  Weight: 68.0396 kg

DRUGS (5)
  1. LUNESTA [Suspect]
     Indication: INSOMNIA
     Dosage: 3 MG;HS;ORAL ; 1.5 MG;ORAL
     Route: 048
     Dates: start: 20050101, end: 20050101
  2. LUNESTA [Suspect]
     Indication: INSOMNIA
     Dosage: 3 MG;HS;ORAL ; 1.5 MG;ORAL
     Route: 048
     Dates: start: 20050101
  3. OGEN [Concomitant]
  4. LEVOXYL [Concomitant]
  5. PROZAC [Concomitant]

REACTIONS (1)
  - DYSGEUSIA [None]
